FAERS Safety Report 10225381 (Version 2)
Quarter: 2014Q4

REPORT INFORMATION
  Report Type: Spontaneous
  Country: US (occurrence: US)
  Receive Date: 20140609
  Receipt Date: 20141105
  Transmission Date: 20150528
  Serious: Yes (Other)
  Sender: FDA-Public Use
  Company Number: US-BAYER-2014-083239

PATIENT
  Age: 28 Year
  Sex: Female
  Weight: 79.37 kg

DRUGS (2)
  1. MIRENA [Suspect]
     Active Substance: LEVONORGESTREL
     Indication: CONTRACEPTION
     Dosage: 20 MCG/24HR, CONT
     Route: 015
     Dates: start: 20140514, end: 20140606
  2. BETADINE [Concomitant]
     Active Substance: POVIDONE-IODINE

REACTIONS (4)
  - Abdominal pain [Recovered/Resolved]
  - Genital haemorrhage [None]
  - Uterine perforation [Recovered/Resolved]
  - Device dislocation [Recovered/Resolved]

NARRATIVE: CASE EVENT DATE: 2014
